FAERS Safety Report 17510969 (Version 10)
Quarter: 2020Q3

REPORT INFORMATION
  Report Type: Spontaneous
  Country: US (occurrence: US)
  Receive Date: 20200306
  Receipt Date: 20200816
  Transmission Date: 20201102
  Serious: Yes (Disabling, Other)
  Sender: FDA-Public Use
  Company Number: NVSC2020US059868

PATIENT
  Age: 77 Year
  Sex: Female

DRUGS (4)
  1. AVASTIN [Suspect]
     Active Substance: BEVACIZUMAB
     Dosage: UNK, QMO (11 INJECTION EVERY MONTH)
     Route: 031
     Dates: start: 20191218
  2. BEOVU [Suspect]
     Active Substance: BROLUCIZUMAB-DBLL
     Indication: MACULAR DEGENERATION
     Dosage: 6 MG, ONCE/SINGLE
     Route: 047
     Dates: start: 20200116, end: 20200116
  3. EYLEA [Suspect]
     Active Substance: AFLIBERCEPT
     Indication: NEOVASCULAR AGE-RELATED MACULAR DEGENERATION
     Dosage: 2 MG, ONCE/SINGLE
     Route: 031
     Dates: start: 20200214, end: 20200228
  4. AVASTIN [Suspect]
     Active Substance: BEVACIZUMAB
     Indication: NEOVASCULAR AGE-RELATED MACULAR DEGENERATION
     Dosage: UNK UNK, QMO (11 INJECTION EVERY MONTH)
     Route: 031
     Dates: start: 20190305

REACTIONS (13)
  - Uveitis [Unknown]
  - Endophthalmitis [Unknown]
  - Eye irritation [Unknown]
  - Vision blurred [Unknown]
  - Blindness [Not Recovered/Not Resolved]
  - Visual field defect [Recovered/Resolved with Sequelae]
  - Eye pain [Unknown]
  - Retinal vasculitis [Recovering/Resolving]
  - Retinal ischaemia [Recovering/Resolving]
  - Ocular hyperaemia [Unknown]
  - Uveitis [Recovered/Resolved]
  - Visual acuity reduced [Unknown]
  - Product preparation error [Unknown]

NARRATIVE: CASE EVENT DATE: 20200130
